FAERS Safety Report 5369499-0 (Version None)
Quarter: 2007Q2

REPORT INFORMATION
  Report Type: 
  Country: None (occurrence: None)
  Receive Date: 20070625
  Receipt Date: 20070620
  Transmission Date: 20071010
  Serious: Yes (Hospitalization)
  Sender: FDA-Public Use
  Company Number: A0603845A

PATIENT
  Age: 18 Year
  Sex: Female

DRUGS (5)
  1. WELLBUTRIN XL [Suspect]
     Indication: DEPRESSION
     Dosage: 300MG PER DAY
     Route: 048
     Dates: start: 20060101
  2. LAMICTAL [Suspect]
     Indication: BIPOLAR DISORDER
     Dosage: 25MG PER DAY
     Route: 048
     Dates: start: 20070525, end: 20070601
  3. ABILIFY [Suspect]
  4. LEXAPRO [Concomitant]
     Dates: start: 20070501
  5. ZYPREXA [Concomitant]

REACTIONS (13)
  - COMMUNICATION DISORDER [None]
  - CONVULSION [None]
  - DEPRESSION [None]
  - DRUG ADMINISTRATION ERROR [None]
  - DRUG INEFFECTIVE [None]
  - EMOTIONAL DISTRESS [None]
  - INJURY [None]
  - JOINT SWELLING [None]
  - MENTAL STATUS CHANGES [None]
  - PANIC ATTACK [None]
  - SCREAMING [None]
  - SUICIDE ATTEMPT [None]
  - VISION BLURRED [None]
